FAERS Safety Report 10753878 (Version 2)
Quarter: 2015Q1

REPORT INFORMATION
  Report Type: Spontaneous
  Country: JP (occurrence: JP)
  Receive Date: 20150202
  Receipt Date: 20150216
  Transmission Date: 20150721
  Serious: Yes (Hospitalization)
  Sender: FDA-Public Use
  Company Number: JP-ROCHE-1509545

PATIENT
  Age: 71 Year
  Sex: Female
  Weight: 48 kg

DRUGS (13)
  1. PACLITAXEL. [Concomitant]
     Active Substance: PACLITAXEL
     Indication: OVARIAN CANCER METASTATIC
     Route: 041
     Dates: start: 20140409, end: 20140514
  2. CARBOPLATIN. [Suspect]
     Active Substance: CARBOPLATIN
     Indication: OVARIAN CANCER METASTATIC
     Route: 041
     Dates: start: 20140409, end: 20140514
  3. WARFARIN [Suspect]
     Active Substance: WARFARIN
     Indication: THROMBOSIS
     Dosage: DOSAGE IS UNCERTAIN.
     Route: 048
     Dates: start: 20141017, end: 20141212
  4. DECADRON [Suspect]
     Active Substance: DEXAMETHASONE
     Indication: PROPHYLAXIS OF NAUSEA AND VOMITING
     Dosage: DOSAGE IS UNCERTAIN.
     Route: 042
     Dates: start: 20140409
  5. AVASTIN [Suspect]
     Active Substance: BEVACIZUMAB
     Indication: OVARIAN CANCER METASTATIC
     Dosage: TREATMENT LINE: 2
     Route: 041
     Dates: start: 20140409, end: 20140514
  6. DOCETAXEL. [Suspect]
     Active Substance: DOCETAXEL
     Indication: OVARIAN CANCER METASTATIC
     Dosage: MOST RECENT DOSE ON : 30/JUL/2014
     Route: 041
     Dates: start: 20140604, end: 20140730
  7. PRORENAL (JAPAN) [Suspect]
     Active Substance: LIMAPROST
     Indication: ANALGESIC THERAPY
     Dosage: DOSAGE IS UNCERTAIN.?MOST RECENT DOSE ON : 12/DEC/2014
     Route: 048
     Dates: start: 20140430, end: 20141212
  8. DECADRON [Suspect]
     Active Substance: DEXAMETHASONE
     Indication: PROPHYLAXIS OF NAUSEA AND VOMITING
     Dosage: DOSAGE IS UNCERTAIN.
     Route: 048
     Dates: start: 20140409
  9. CELECOX [Concomitant]
     Active Substance: CELECOXIB
     Indication: ANALGESIC THERAPY
     Dosage: DOSAGE IS UNCERTAIN.
     Route: 048
     Dates: start: 20140409, end: 20140513
  10. LOXONIN [Concomitant]
     Active Substance: LOXOPROFEN SODIUM
     Indication: ANALGESIC THERAPY
     Dosage: DOSAGE IS UNCERTAIN.
     Route: 048
     Dates: start: 20140507, end: 20141021
  11. AVASTIN [Suspect]
     Active Substance: BEVACIZUMAB
     Indication: OVARIAN CANCER METASTATIC
     Dosage: MOST RECENT DOSE PRIOR TO AE : 30/JUL/2014
     Route: 041
     Dates: start: 20140604, end: 20140730
  12. CARBOPLATIN. [Suspect]
     Active Substance: CARBOPLATIN
     Indication: OVARIAN CANCER METASTATIC
     Dosage: MOST RECENT DOSE ON : 30/JUL/2014
     Route: 041
     Dates: start: 20140604, end: 20140730
  13. EMEND [Concomitant]
     Active Substance: APREPITANT
     Indication: PROPHYLAXIS OF NAUSEA AND VOMITING
     Dosage: DOSAGE IS UNCERTAIN.
     Route: 048
     Dates: start: 20140409, end: 20141007

REACTIONS (3)
  - Hypertension [Recovering/Resolving]
  - Deep vein thrombosis [Recovering/Resolving]
  - Haemobilia [Recovering/Resolving]

NARRATIVE: CASE EVENT DATE: 20140514
